FAERS Safety Report 9308443 (Version 1)
Quarter: 2013Q2

REPORT INFORMATION
  Report Type: Report from Study
  Country: US (occurrence: US)
  Receive Date: 20130524
  Receipt Date: 20130524
  Transmission Date: 20140414
  Serious: Yes (Hospitalization)
  Sender: FDA-Public Use
  Company Number: US-JNJFOC-20130513499

PATIENT
  Age: 14 Year
  Sex: Male
  Weight: 59.7 kg

DRUGS (11)
  1. REMICADE [Suspect]
     Indication: INFLAMMATORY BOWEL DISEASE
     Dosage: INFLIXIMAB WAS RE-INITIATED ON 23-AUG-2013 (FUTURE DATE, CONFLICTINGLY REPORTED) AND WAS CONTINUING
     Route: 042
  2. REMICADE [Suspect]
     Indication: INFLAMMATORY BOWEL DISEASE
     Route: 042
     Dates: start: 20130304
  3. REMICADE [Suspect]
     Indication: INFLAMMATORY BOWEL DISEASE
     Route: 042
     Dates: start: 20100323
  4. METHOTREXATE [Concomitant]
     Route: 065
  5. ZINC [Concomitant]
     Route: 065
  6. VITAMIN D [Concomitant]
     Route: 065
  7. CALCIUM [Concomitant]
     Route: 065
  8. VERAPAMIL [Concomitant]
     Route: 065
  9. MELATONIN [Concomitant]
     Route: 065
  10. ELAVIL [Concomitant]
     Route: 065
  11. PRILOSEC [Concomitant]
     Route: 065

REACTIONS (1)
  - Crohn^s disease [Recovered/Resolved]
